FAERS Safety Report 23461130 (Version 1)
Quarter: 2024Q1

REPORT INFORMATION
  Report Type: Spontaneous
  Country: DE (occurrence: DE)
  Receive Date: 20240131
  Receipt Date: 20240131
  Transmission Date: 20240409
  Serious: Yes (Other)
  Sender: FDA-Public Use
  Company Number: DE-ITM MEDICAL ISOTOPES GMBH-ITMDE2023000101

PATIENT
  Age: 74 Year
  Sex: Male

DRUGS (2)
  1. PLUVICTO [Suspect]
     Active Substance: LUTETIUM LU-177 VIPIVOTIDE TETRAXETAN
     Indication: Hormone-refractory prostate cancer
     Dosage: 10.7 GBQ, CYCLIC (TWO CYCLES)
     Route: 042
  2. LUTETIUM CHLORIDE LU-177 [Suspect]
     Active Substance: LUTETIUM CHLORIDE LU-177
     Indication: Radioisotope therapy
     Dosage: 10.7 GBQ, CYCLIC (TWO CYCLES)
     Route: 050

REACTIONS (4)
  - Hydronephrosis [Unknown]
  - Postrenal failure [Unknown]
  - Ureteric obstruction [Unknown]
  - Disease progression [Unknown]
